FAERS Safety Report 8124169-0 (Version None)
Quarter: 2012Q1

REPORT INFORMATION
  Report Type: 
  Country: None (occurrence: None)
  Receive Date: 20120209
  Receipt Date: 20120131
  Transmission Date: 20120608
  Serious: Yes (Hospitalization, Other)
  Sender: FDA-Public Use
  Company Number: US-BAYER-2011-046026

PATIENT
  Age: 26 Year
  Sex: Female
  Weight: 56.689 kg

DRUGS (1)
  1. YAZ [Suspect]
     Indication: CONTRACEPTION
     Dosage: UNK
     Route: 048
     Dates: start: 20061102, end: 20070108

REACTIONS (11)
  - ABDOMINAL PAIN LOWER [None]
  - PELVIC VENOUS THROMBOSIS [None]
  - PAIN [None]
  - INJURY [None]
  - EMOTIONAL DISTRESS [None]
  - PAIN IN EXTREMITY [None]
  - SPIDER VEIN [None]
  - PERIPHERAL VASCULAR DISORDER [None]
  - ANHEDONIA [None]
  - VARICOSE VEIN [None]
  - DEEP VEIN THROMBOSIS [None]
